FAERS Safety Report 6896355-9 (Version None)
Quarter: 2010Q3

REPORT INFORMATION
  Report Type: 
  Country: None (occurrence: None)
  Receive Date: 20100802
  Receipt Date: 20090114
  Transmission Date: 20110219
  Serious: No
  Sender: FDA-Public Use
  Company Number: US-PFIZER INC-2009155672

PATIENT
  Sex: Female

DRUGS (2)
  1. CAMPTOSAR [Suspect]
     Indication: CERVIX CARCINOMA
     Dosage: UNK
     Dates: start: 20081201
  2. CAMPTOSAR [Suspect]
     Indication: METASTATIC NEOPLASM

REACTIONS (5)
  - ALOPECIA [None]
  - DIARRHOEA [None]
  - FULL BLOOD COUNT DECREASED [None]
  - RED BLOOD CELL COUNT DECREASED [None]
  - WHITE BLOOD CELL COUNT DECREASED [None]
